FAERS Safety Report 13421623 (Version 1)
Quarter: 2017Q2

REPORT INFORMATION
  Report Type: Spontaneous
  Country: US (occurrence: US)
  Receive Date: 20170410
  Receipt Date: 20170410
  Transmission Date: 20170830
  Serious: No
  Sender: FDA-Public Use
  Company Number: US-JNJFOC-20170332950

PATIENT
  Age: 80 Year
  Sex: Female
  Weight: 52.62 kg

DRUGS (2)
  1. ZYRTEC [Suspect]
     Active Substance: CETIRIZINE HYDROCHLORIDE
     Route: 048
  2. ZYRTEC [Suspect]
     Active Substance: CETIRIZINE HYDROCHLORIDE
     Indication: RASH MACULAR
     Dosage: 1 TABLET (10MG), 1 TIME FOR RED BLOTCHES ON EYE LIDS
     Route: 048
     Dates: start: 20170329

REACTIONS (5)
  - Product packaging issue [Unknown]
  - Product outer packaging issue [Unknown]
  - Off label use [Unknown]
  - Product closure removal difficult [Unknown]
  - Product use in unapproved indication [Unknown]

NARRATIVE: CASE EVENT DATE: 20170329
